FAERS Safety Report 4306700-6 (Version None)
Quarter: 2004Q1

REPORT INFORMATION
  Report Type: 
  Country: None (occurrence: None)
  Receive Date: 20040225
  Receipt Date: 20031107
  Transmission Date: 20041129
  Serious: No
  Sender: FDA-Public Use
  Company Number: US-BRISTOL-MYERS SQUIBB COMPANY-12451373

PATIENT
  Age: 24 Year
  Sex: Female
  Weight: 52 kg

DRUGS (1)
  1. EXCEDRIN ES TABS [Suspect]
     Indication: HEADACHE
     Dosage: TOOK @ 4:00PM
     Route: 048
     Dates: start: 20031106, end: 20031106

REACTIONS (5)
  - ABDOMINAL PAIN UPPER [None]
  - CHEST DISCOMFORT [None]
  - DYSPNOEA [None]
  - INSOMNIA [None]
  - PAIN IN EXTREMITY [None]
